FAERS Safety Report 5894435-8 (Version None)
Quarter: 2008Q3

REPORT INFORMATION
  Report Type: 
  Country: None (occurrence: None)
  Receive Date: 20080923
  Receipt Date: 20080923
  Transmission Date: 20090109
  Serious: Yes (Other)
  Sender: FDA-Public Use
  Company Number: None

PATIENT
  Age: 55 Year
  Sex: Female
  Weight: 90.2658 kg

DRUGS (2)
  1. ZOCOR [Suspect]
     Indication: HYPERLIPIDAEMIA
     Dosage: 1 DAILY QHS
     Dates: start: 20050101
  2. LIPITOR [Suspect]
     Dosage: 1 DAILY QHS
     Dates: start: 20080101

REACTIONS (3)
  - ABDOMINAL PAIN [None]
  - HEADACHE [None]
  - MYALGIA [None]
